FAERS Safety Report 8479391-0 (Version None)
Quarter: 2012Q2

REPORT INFORMATION
  Report Type: 
  Country: None (occurrence: None)
  Receive Date: 20120629
  Receipt Date: 20120625
  Transmission Date: 20120825
  Serious: Yes (Hospitalization)
  Sender: FDA-Public Use
  Company Number: PHHY2012CN054643

PATIENT
  Age: 20 Year
  Sex: Male

DRUGS (1)
  1. CARBAMAZEPINE [Suspect]
     Dosage: 40 DF, STAT
     Dates: start: 20100811

REACTIONS (12)
  - RESTLESSNESS [None]
  - CONVULSION [None]
  - CHEILITIS [None]
  - LOSS OF CONSCIOUSNESS [None]
  - RHABDOMYOLYSIS [None]
  - MUSCULAR WEAKNESS [None]
  - TOXICITY TO VARIOUS AGENTS [None]
  - SCREAMING [None]
  - COMA [None]
  - CONFUSIONAL STATE [None]
  - CHROMATURIA [None]
  - NAUSEA [None]
